FAERS Safety Report 21293695 (Version 1)
Quarter: 2022Q3

REPORT INFORMATION
  Report Type: Spontaneous
  Country: US (occurrence: US)
  Receive Date: 20220905
  Receipt Date: 20220905
  Transmission Date: 20221026
  Serious: Yes (Other)
  Sender: FDA-Public Use
  Company Number: US-SA-SAC20220902000494

PATIENT
  Sex: Male

DRUGS (2)
  1. ZANTAC [Suspect]
     Active Substance: RANITIDINE HYDROCHLORIDE
     Dosage: UNK PRESCRIPTION ZANTAC FROM APPROXIMATELY 2005 TO 2014
     Route: 048
     Dates: start: 2005, end: 2014
  2. RANITIDINE HYDROCHLORIDE [Suspect]
     Active Substance: RANITIDINE HYDROCHLORIDE
     Dosage: UNK PRESCRIPTION RANITIDINE FROM APPROXIMATELY 2005 TO 2014
     Route: 048
     Dates: start: 2005, end: 2014

REACTIONS (1)
  - Prostate cancer [Unknown]
